FAERS Safety Report 25673148 (Version 1)
Quarter: 2025Q3

REPORT INFORMATION
  Report Type: Spontaneous
  Country: EU (occurrence: EU)
  Receive Date: 20250813
  Receipt Date: 20250813
  Transmission Date: 20251020
  Serious: Yes (Other)
  Sender: BRISTOL-MYERS SQUIBB COMPANY
  Company Number: None

PATIENT
  Age: 93 Year
  Sex: Female

DRUGS (1)
  1. ELIQUIS [Suspect]
     Active Substance: APIXABAN
     Indication: Atrial fibrillation
     Dosage: 1-0-1?100 TABLETS.
     Route: 048
     Dates: start: 20210706, end: 20250714

REACTIONS (2)
  - Subarachnoid haemorrhage [Recovering/Resolving]
  - Craniocerebral injury [Unknown]

NARRATIVE: CASE EVENT DATE: 20250701
